FAERS Safety Report 13711341 (Version 1)
Quarter: 2017Q3

REPORT INFORMATION
  Report Type: Spontaneous
  Country: US (occurrence: US)
  Receive Date: 20170703
  Receipt Date: 20170703
  Transmission Date: 20171127
  Serious: Yes (Hospitalization, Other)
  Sender: FDA-Public Use
  Company Number: US-ELI_LILLY_AND_COMPANY-US201706011889

PATIENT
  Sex: Female
  Weight: 48.53 kg

DRUGS (12)
  1. TYVASO [Suspect]
     Active Substance: TREPROSTINIL
     Indication: PULMONARY ARTERIAL HYPERTENSION
     Dosage: UNK UNK, UNKNOWN
     Route: 055
     Dates: start: 20150204
  2. IMODIUM [Suspect]
     Active Substance: LOPERAMIDE HYDROCHLORIDE
     Indication: PRODUCT USED FOR UNKNOWN INDICATION
     Dosage: UNK, UNKNOWN
     Route: 065
  3. ADCIRCA [Suspect]
     Active Substance: TADALAFIL
     Indication: PULMONARY ARTERIAL HYPERTENSION
     Dosage: 40 MG, DAILY
     Route: 048
     Dates: start: 20140929
  4. NORCO [Concomitant]
     Active Substance: ACETAMINOPHEN\HYDROCODONE BITARTRATE
     Indication: PAIN
     Dosage: UNK, UNKNOWN
     Route: 048
  5. BERAPROST SODIUM [Suspect]
     Active Substance: BERAPROST SODIUM
     Indication: PRODUCT USED FOR UNKNOWN INDICATION
     Dosage: UNK, UNKNOWN
     Route: 048
     Dates: start: 20150514
  6. TYVASO [Suspect]
     Active Substance: TREPROSTINIL
     Dosage: 9 DF, QID
     Route: 055
     Dates: start: 20150211
  7. CORTEF [Concomitant]
     Active Substance: HYDROCORTISONE
     Indication: PRODUCT USED FOR UNKNOWN INDICATION
     Dosage: 10 MG, DAILY
     Route: 048
  8. LASIX [Concomitant]
     Active Substance: FUROSEMIDE
     Indication: PULMONARY ARTERIAL HYPERTENSION
     Dosage: 40 MG, DAILY
     Route: 048
     Dates: start: 20161209
  9. BERAPROST SODIUM [Suspect]
     Active Substance: BERAPROST SODIUM
     Dosage: 30 UG, QID
     Route: 048
     Dates: start: 20150529
  10. LOMOTIL [Concomitant]
     Active Substance: ATROPINE SULFATE\DIPHENOXYLATE HYDROCHLORIDE
     Indication: DIARRHOEA
     Dosage: UNK, UNKNOWN
     Route: 048
     Dates: start: 20170522
  11. OPSUMIT [Concomitant]
     Active Substance: MACITENTAN
     Indication: PULMONARY ARTERIAL HYPERTENSION
     Dosage: 10 MG, DAILY
     Route: 048
  12. GRANISETRON [Concomitant]
     Active Substance: GRANISETRON
     Indication: BACTERIAL INFECTION
     Dosage: UNK, UNKNOWN
     Route: 059
     Dates: start: 20170605

REACTIONS (11)
  - Ileus [Recovering/Resolving]
  - Bacterial disease carrier [Unknown]
  - Malnutrition [Unknown]
  - Acute kidney injury [Unknown]
  - Weight decreased [Unknown]
  - Bone disorder [Unknown]
  - Blood alkaline phosphatase increased [Unknown]
  - Ascites [Unknown]
  - Impaired gastric emptying [Unknown]
  - Electrolyte imbalance [Unknown]
  - Hypoglycaemia [Unknown]
